FAERS Safety Report 8012026-X (Version None)
Quarter: 2011Q4

REPORT INFORMATION
  Report Type: 
  Country: None (occurrence: None)
  Receive Date: 20111228
  Receipt Date: 20111220
  Transmission Date: 20120403
  Serious: Yes (Other)
  Sender: FDA-Public Use
  Company Number: IT-GLAXOSMITHKLINE-B0770664A

PATIENT
  Age: 69 Year
  Sex: Male

DRUGS (5)
  1. QUINOLONE [Concomitant]
     Dates: start: 20090101
  2. COUMADIN [Concomitant]
  3. SERENOA [Concomitant]
     Dates: start: 20090101
  4. AVODART [Suspect]
     Indication: PRODUCT USED FOR UNKNOWN INDICATION
     Route: 065
     Dates: start: 20060101
  5. LANOXIN [Concomitant]

REACTIONS (1)
  - BREAST CANCER [None]
